FAERS Safety Report 9820471 (Version 1)
Quarter: 2014Q1

REPORT INFORMATION
  Report Type: Spontaneous
  Country: CN (occurrence: None)
  Receive Date: 20140114
  Receipt Date: 20140114
  Transmission Date: 20141002
  Serious: Yes (Other)
  Sender: FDA-Public Use
  Company Number: 2014P1000020

PATIENT
  Age: 68 Year
  Sex: Male

DRUGS (4)
  1. MITOMYCIN [Suspect]
     Indication: HEPATOCELLULAR CARCINOMA
     Route: 013
  2. PIRARUBICIN [Suspect]
     Indication: HEPATOCELLULAR CARCINOMA
     Dosage: 10 MG; IART
     Route: 013
  3. OXALIPLATIN [Suspect]
     Indication: HEPATOCELLULAR CARCINOMA
     Route: 013
  4. IODINATED OIL [Suspect]
     Indication: HEPATOCELLULAR CARCINOMA
     Route: 013

REACTIONS (3)
  - Skin necrosis [None]
  - Urinary retention [None]
  - Muscular weakness [None]
